FAERS Safety Report 25749388 (Version 1)
Quarter: 2025Q3

REPORT INFORMATION
  Report Type: Other
  Country: VN (occurrence: VN)
  Receive Date: 20250902
  Receipt Date: 20250902
  Transmission Date: 20251020
  Serious: Yes (Life-Threatening, Hospitalization, Other)
  Sender: COREPHARMA LLC
  Company Number: VN-CorePharma LLC-2183637

PATIENT
  Age: 70 Year
  Sex: Male

DRUGS (1)
  1. AMLODIPINE BESYLATE [Suspect]
     Active Substance: AMLODIPINE BESYLATE
     Indication: Product used for unknown indication

REACTIONS (10)
  - Acute respiratory distress syndrome [Recovering/Resolving]
  - Intentional overdose [Unknown]
  - Acidosis [Recovering/Resolving]
  - Bradycardia [Recovering/Resolving]
  - Hypotension [Recovering/Resolving]
  - Dyspnoea [Recovering/Resolving]
  - Coma [Recovering/Resolving]
  - Toxicity to various agents [Recovering/Resolving]
  - Cardiac dysfunction [Recovering/Resolving]
  - Non-cardiogenic pulmonary oedema [Recovering/Resolving]
